FAERS Safety Report 6958265-8 (Version None)
Quarter: 2010Q3

REPORT INFORMATION
  Report Type: 
  Country: None (occurrence: None)
  Receive Date: 20100831
  Receipt Date: 20100223
  Transmission Date: 20110219
  Serious: Yes (Hospitalization, Congenital Anomaly)
  Sender: FDA-Public Use
  Company Number: AU-SANOFI-AVENTIS-2009SA007660

PATIENT
  Age: 70 Year
  Sex: Female

DRUGS (12)
  1. LANTUS [Suspect]
     Dosage: 30
     Route: 058
     Dates: start: 20081001
  2. ARAVA [Concomitant]
  3. AMPRACE [Concomitant]
  4. CALCITRIOL [Concomitant]
  5. LASIX [Concomitant]
  6. ASPIRIN [Concomitant]
  7. ZOCOR [Concomitant]
  8. ALL OTHER THERAPEUTIC PRODUCTS [Concomitant]
  9. LYRICA [Concomitant]
  10. PREDNISONE [Concomitant]
  11. INSULIN MIXTARD [Concomitant]
  12. OXYGEN [Concomitant]

REACTIONS (1)
  - INTESTINAL PERFORATION [None]
